FAERS Safety Report 5121374-2 (Version None)
Quarter: 2006Q4

REPORT INFORMATION
  Report Type: 
  Country: None (occurrence: None)
  Receive Date: 20061002
  Receipt Date: 20060911
  Transmission Date: 20070319
  Serious: Yes (Life-Threatening, Hospitalization, Other)
  Sender: FDA-Public Use
  Company Number: US200608001384

PATIENT
  Age: 63 Year
  Sex: Male

DRUGS (7)
  1. CECLOR [Suspect]
     Indication: NAIL INFECTION
     Dosage: ORAL
     Route: 048
     Dates: start: 20040817, end: 20040817
  2. PLAVIX [Concomitant]
  3. HYZAAR [Concomitant]
  4. CARDURA [Concomitant]
  5. ZANTAC [Concomitant]
  6. VANQUISH (ACETYLSALICYLIC ACID, ALUMINIUM HYDROXIDE GEL, DRIED, CAFFEI [Concomitant]
  7. SULINDAC [Concomitant]

REACTIONS (18)
  - BACK PAIN [None]
  - BLOOD LACTATE DEHYDROGENASE INCREASED [None]
  - CHEST DISCOMFORT [None]
  - CONFUSIONAL STATE [None]
  - DIALYSIS [None]
  - DIZZINESS [None]
  - DRUG HYPERSENSITIVITY [None]
  - DYSKINESIA [None]
  - HAEMATOCRIT DECREASED [None]
  - HAEMOGLOBIN DECREASED [None]
  - HAEMOLYTIC URAEMIC SYNDROME [None]
  - HAPTOGLOBIN DECREASED [None]
  - MENTAL STATUS CHANGES [None]
  - PYREXIA [None]
  - RENAL FAILURE ACUTE [None]
  - RESPIRATORY FAILURE [None]
  - SYNCOPE [None]
  - THROMBOTIC THROMBOCYTOPENIC PURPURA [None]
